FAERS Safety Report 4474541-5 (Version None)
Quarter: 2004Q4

REPORT INFORMATION
  Report Type: 
  Country: None (occurrence: None)
  Receive Date: 20041008
  Receipt Date: 20040928
  Transmission Date: 20050328
  Serious: Yes (Death)
  Sender: FDA-Public Use
  Company Number: K200401474

PATIENT

DRUGS (1)
  1. SKELAXIN [Suspect]

REACTIONS (1)
  - DRUG TOXICITY [None]
